FAERS Safety Report 5361511-8 (Version None)
Quarter: 2007Q2

REPORT INFORMATION
  Report Type: 
  Country: None (occurrence: None)
  Receive Date: 20070619
  Receipt Date: 20070607
  Transmission Date: 20071010
  Serious: Yes (Hospitalization, Other)
  Sender: FDA-Public Use
  Company Number: PHEH2007US05386

PATIENT
  Age: 58 Year
  Sex: Female
  Weight: 99.773 kg

DRUGS (15)
  1. ZELNORM [Suspect]
     Indication: IRRITABLE BOWEL SYNDROME
     Dosage: 6 MG, BID
     Route: 048
     Dates: start: 20051102, end: 20070412
  2. TOPROL-XL [Concomitant]
     Indication: HYPERTENSION
     Dosage: 100 MG, QD
     Route: 048
     Dates: start: 20020101
  3. NEXIUM [Concomitant]
     Indication: DYSPEPSIA
     Dosage: 40 MG, QD
     Route: 048
     Dates: start: 20020101
  4. SYNTHROID [Concomitant]
     Indication: HYPERTHYROIDISM
     Dosage: 112 MCG, QD
     Route: 048
     Dates: start: 19990101
  5. ZYRTEC [Concomitant]
     Indication: HYPERSENSITIVITY
     Dosage: 10 MG, PRN
     Route: 048
  6. ANTIHYPERTENSIVES [Concomitant]
  7. ZOLOFT [Concomitant]
     Route: 048
  8. ALLEGRA [Concomitant]
     Route: 048
  9. FLONASE [Concomitant]
  10. BENICAR [Concomitant]
     Route: 048
  11. BENTYL [Concomitant]
     Dosage: 10 MG, TID
     Route: 048
  12. BENEFIBER [Concomitant]
     Route: 048
  13. HYDROCHLOROTHIAZIDE [Concomitant]
     Route: 048
  14. LUNESTA [Concomitant]
     Route: 048
  15. GLYCOLAX [Concomitant]
     Route: 048

REACTIONS (21)
  - ABDOMINAL DISTENSION [None]
  - ABDOMINAL PAIN [None]
  - ABDOMINAL PAIN UPPER [None]
  - BACK PAIN [None]
  - BLOOD PRESSURE FLUCTUATION [None]
  - CHEST PAIN [None]
  - DIARRHOEA [None]
  - DYSPEPSIA [None]
  - ERUCTATION [None]
  - FLATULENCE [None]
  - HAEMATOCHEZIA [None]
  - HYPERTENSION [None]
  - IRRITABLE BOWEL SYNDROME [None]
  - MUSCULOSKELETAL PAIN [None]
  - NAUSEA [None]
  - PAIN [None]
  - PAIN IN EXTREMITY [None]
  - PALPITATIONS [None]
  - RASH ERYTHEMATOUS [None]
  - SINUSITIS [None]
  - URINARY TRACT INFECTION [None]
